FAERS Safety Report 6653089-3 (Version None)
Quarter: 2010Q1

REPORT INFORMATION
  Report Type: 
  Country: None (occurrence: None)
  Receive Date: 20100326
  Receipt Date: 20100316
  Transmission Date: 20100710
  Serious: Yes (Disabling)
  Sender: FDA-Public Use
  Company Number: DK-BAYER-200927399GPV

PATIENT
  Age: 37 Year
  Sex: Female
  Weight: 49 kg

DRUGS (3)
  1. GADOVIST [Suspect]
     Indication: SCAN WITH CONTRAST
     Route: 042
     Dates: start: 20080131, end: 20080131
  2. MAGNEVIST [Suspect]
     Indication: SCAN WITH CONTRAST
     Dosage: UNIT DOSE: 469 MG/ML
     Route: 042
     Dates: start: 20060428, end: 20060428
  3. MAGNEVIST [Suspect]
     Dosage: UNIT DOSE: 469 MG/ML
     Route: 042
     Dates: start: 20070125, end: 20070125

REACTIONS (5)
  - ACQUIRED PORPHYRIA [None]
  - ARTHROPATHY [None]
  - BLISTER [None]
  - ECZEMA [None]
  - NEPHROGENIC SYSTEMIC FIBROSIS [None]
